FAERS Safety Report 5868693-X (Version None)
Quarter: 2008Q3

REPORT INFORMATION
  Report Type: 
  Country: None (occurrence: None)
  Receive Date: 20080903
  Receipt Date: 20080903
  Transmission Date: 20090109
  Serious: Yes (Hospitalization)
  Sender: FDA-Public Use
  Company Number: PHEH1996US10409

PATIENT
  Sex: Male
  Weight: 65 kg

DRUGS (12)
  1. SANDIMMUNE [Suspect]
     Dosage: UNSPECIFIED
     Route: 048
     Dates: start: 19951023, end: 19951030
  2. PEPECID [Concomitant]
     Dosage: UNSPECIFIED
     Route: 065
  3. DOPAMINE HCL [Concomitant]
     Dosage: UNSPECIFIED
     Route: 065
  4. VITAMIN [Concomitant]
     Dosage: UNSPECIFIED
     Route: 065
  5. IMIPENEM [Concomitant]
     Dosage: UNSPECIFIED
     Route: 065
  6. GANCICLOVIR [Concomitant]
     Dosage: UNSPECIFIED
     Route: 065
  7. TUMS [Concomitant]
     Dosage: UNSPECIFIED
     Route: 065
  8. ALTERNAGEL [Concomitant]
     Dosage: UNSPECIFIED
     Route: 065
  9. BACTRIM [Concomitant]
     Dosage: UNSPECIFIED
  10. CALCIUM GLUCONATE [Concomitant]
     Dosage: UNSPECIFIED
  11. VITAMIN K TAB [Concomitant]
     Dosage: UNSPECIFIED
  12. REGULAR INSULIN [Concomitant]
     Dosage: UNSPECIFIED

REACTIONS (6)
  - ASCITES [None]
  - CONVULSION [None]
  - GASTROINTESTINAL HAEMORRHAGE [None]
  - HAEMATOCHEZIA [None]
  - IMPAIRED HEALING [None]
  - RED BLOOD CELL COUNT DECREASED [None]
